FAERS Safety Report 7342583-8 (Version None)
Quarter: 2011Q1

REPORT INFORMATION
  Report Type: 
  Country: None (occurrence: None)
  Receive Date: 20110310
  Receipt Date: 20100908
  Transmission Date: 20110831
  Serious: Yes (Hospitalization)
  Sender: FDA-Public Use
  Company Number: US-BAYER-201021012NA

PATIENT
  Sex: Female
  Weight: 87.982 kg

DRUGS (5)
  1. MERIDIA [Concomitant]
     Indication: OBESITY
     Dosage: 15 MG, QD
     Route: 048
  2. DARVOCET [Concomitant]
     Indication: MUSCLE SPASMS
     Dosage: UNK
     Route: 048
     Dates: start: 20071001
  3. YASMIN [Suspect]
     Indication: OVARIAN CYST
     Dosage: UNK
     Route: 048
     Dates: start: 20060901, end: 20070301
  4. PHENTERMINE [Concomitant]
     Indication: OBESITY
     Dosage: 37.5 MG, UNK
     Route: 048
  5. CATAFLAM [Concomitant]
     Indication: MUSCLE SPASMS
     Dosage: UNK
     Route: 048
     Dates: start: 20071001

REACTIONS (2)
  - CHOLELITHIASIS [None]
  - PAIN [None]
